FAERS Safety Report 15302942 (Version 1)
Quarter: 2018Q3

REPORT INFORMATION
  Report Type: Report from Study
  Country: BR (occurrence: BR)
  Receive Date: 20180821
  Receipt Date: 20180821
  Transmission Date: 20181010
  Serious: Yes (Other)
  Sender: FDA-Public Use
  Company Number: PHHY2018BR006446

PATIENT
  Sex: Female

DRUGS (1)
  1. EXELON PATCH [Suspect]
     Active Substance: RIVASTIGMINE
     Indication: DEMENTIA ALZHEIMER^S TYPE
     Dosage: UNK
     Route: 062

REACTIONS (7)
  - Nervousness [Unknown]
  - Laziness [Unknown]
  - Fall [Unknown]
  - Gait disturbance [Unknown]
  - Screaming [Unknown]
  - Stubbornness [Unknown]
  - Femur fracture [Unknown]
